FAERS Safety Report 12253079 (Version 3)
Quarter: 2016Q2

REPORT INFORMATION
  Report Type: Spontaneous
  Country: CN (occurrence: CN)
  Receive Date: 20160411
  Receipt Date: 20160526
  Transmission Date: 20160815
  Serious: Yes (Other)
  Sender: FDA-Public Use
  Company Number: CN-PFIZER INC-2016200851

PATIENT
  Sex: Male

DRUGS (3)
  1. CORDARONE [Suspect]
     Active Substance: AMIODARONE HYDROCHLORIDE
     Dosage: 2 DF, DAILY
     Route: 048
  2. CORDARONE [Suspect]
     Active Substance: AMIODARONE HYDROCHLORIDE
     Dosage: UNK,DAILY (2 OR 1 TABLET PER DAY)
     Route: 048
     Dates: end: 20160224
  3. CORDARONE [Suspect]
     Active Substance: AMIODARONE HYDROCHLORIDE
     Indication: ARRHYTHMIA
     Dosage: 3 DF, DAILY
     Route: 048
     Dates: start: 20151102

REACTIONS (2)
  - Poisoning [Recovering/Resolving]
  - Neuromyopathy [Recovering/Resolving]

NARRATIVE: CASE EVENT DATE: 20160117
